FAERS Safety Report 15824627 (Version 3)
Quarter: 2020Q4

REPORT INFORMATION
  Report Type: Spontaneous
  Country: US (occurrence: US)
  Receive Date: 20190115
  Receipt Date: 20201021
  Transmission Date: 20210113
  Serious: Yes (Other)
  Sender: FDA-Public Use
  Company Number: US-TORRENT-00007438

PATIENT
  Age: 80 Year
  Sex: Female
  Weight: 73 kg

DRUGS (5)
  1. LOSARTAN POTASSIUM TABLETS [Suspect]
     Active Substance: LOSARTAN POTASSIUM
     Indication: HYPERTENSION
     Dosage: 100 MG ONCE PER DAY, SINCE LAST TWO YEARS
     Route: 048
     Dates: start: 2017
  2. ALAZINE [Concomitant]
     Indication: BLOOD PRESSURE MEASUREMENT
     Dosage: UNKNOWN
  3. COMBIGAN [Concomitant]
     Active Substance: BRIMONIDINE TARTRATE\TIMOLOL MALEATE
     Indication: GLAUCOMA
     Dosage: TWICE A DAY
  4. TELMISARTAN. [Concomitant]
     Active Substance: TELMISARTAN
     Indication: HYPERTENSION
     Dosage: 80 MG ONCE IN MORNING
  5. AESOP [Concomitant]
     Indication: GLAUCOMA
     Dosage: TWICE A DAY

REACTIONS (1)
  - Glaucoma [Not Recovered/Not Resolved]

NARRATIVE: CASE EVENT DATE: 201809
